FAERS Safety Report 14051709 (Version 1)
Quarter: 2017Q4

REPORT INFORMATION
  Report Type: Spontaneous
  Country: US (occurrence: US)
  Receive Date: 20171006
  Receipt Date: 20171006
  Transmission Date: 20180321
  Serious: Yes (Life-Threatening, Hospitalization, Other)
  Sender: FDA-Public Use
  Company Number: US-SUN PHARMACEUTICAL INDUSTRIES LTD-2015US-105068

PATIENT
  Age: 30 Year
  Sex: Female

DRUGS (1)
  1. BUPROPION. [Suspect]
     Active Substance: BUPROPION
     Indication: PRODUCT USED FOR UNKNOWN INDICATION
     Dosage: UNK
     Route: 065

REACTIONS (7)
  - Tachycardia [Recovered/Resolved]
  - Intentional overdose [Unknown]
  - Generalised tonic-clonic seizure [Unknown]
  - Mental status changes [Unknown]
  - Hypotension [Unknown]
  - Metabolic acidosis [Recovered/Resolved]
  - Electrocardiogram QT prolonged [Not Recovered/Not Resolved]
